FAERS Safety Report 15223236 (Version 6)
Quarter: 2019Q1

REPORT INFORMATION
  Report Type: Spontaneous
  Country: CA (occurrence: CA)
  Receive Date: 20180731
  Receipt Date: 20190226
  Transmission Date: 20190417
  Serious: Yes (Other)
  Sender: FDA-Public Use
  Company Number: CA-PFIZER INC-2018303325

PATIENT
  Age: 31 Year
  Sex: Male
  Weight: 80 kg

DRUGS (3)
  1. OMEPRAZOLE. [Concomitant]
     Active Substance: OMEPRAZOLE
     Indication: GASTROOESOPHAGEAL REFLUX DISEASE
     Dosage: 20 MG, 1X/DAY
     Route: 048
  2. METHOTREXATE SODIUM. [Suspect]
     Active Substance: METHOTREXATE SODIUM
     Indication: CROHN^S DISEASE
     Dosage: 25 MG, WEEKLY (EVERY FRIDAY)
     Route: 048
     Dates: start: 201806
  3. APO FOLIC [Concomitant]
     Active Substance: FOLIC ACID
     Dosage: 5 MG, WEEKLY

REACTIONS (11)
  - Weight decreased [Unknown]
  - Gastrointestinal sounds abnormal [Unknown]
  - Rectal haemorrhage [Unknown]
  - White blood cell count increased [Unknown]
  - Fistula [Unknown]
  - Therapeutic response decreased [Unknown]
  - Condition aggravated [Not Recovered/Not Resolved]
  - Abdominal pain [Not Recovered/Not Resolved]
  - Neutrophilia [Unknown]
  - Malaise [Unknown]
  - Drug ineffective for unapproved indication [Not Recovered/Not Resolved]
